FAERS Safety Report 8527572 (Version 9)
Quarter: 2024Q2

REPORT INFORMATION
  Report Type: Report from Study
  Country: US (occurrence: US)
  Receive Date: 20120424
  Receipt Date: 20240626
  Transmission Date: 20240716
  Serious: Yes (Hospitalization, Other)
  Sender: FDA-Public Use
  Company Number: US-JNJFOC-20120408677

PATIENT
  Age: 53 Year
  Sex: Female
  Weight: 54.48 kg

DRUGS (1)
  1. STELARA [Suspect]
     Active Substance: USTEKINUMAB
     Indication: Psoriasis
     Route: 058
     Dates: start: 20100518, end: 20120427

REACTIONS (8)
  - Clostridium difficile colitis [Unknown]
  - Hepatitis alcoholic [Unknown]
  - Alcoholic pancreatitis [Recovered/Resolved]
  - Alcohol withdrawal syndrome [Recovered/Resolved with Sequelae]
  - Pulmonary mass [Unknown]
  - Depression [Recovered/Resolved]
  - Chronic obstructive pulmonary disease [Unknown]
  - Hypertriglyceridaemia [Unknown]

NARRATIVE: CASE EVENT DATE: 20110601
